FAERS Safety Report 15655164 (Version 1)
Quarter: 2018Q4

REPORT INFORMATION
  Report Type: Spontaneous
  Country: KR (occurrence: KR)
  Receive Date: 20181126
  Receipt Date: 20181126
  Transmission Date: 20190205
  Serious: Yes (Death, Other)
  Sender: FDA-Public Use
  Company Number: KR-009507513-1811KOR008260

PATIENT
  Sex: Male

DRUGS (25)
  1. ADALAT [Concomitant]
     Active Substance: NIFEDIPINE
     Dosage: QUANTITY:2, DAY:1
     Dates: start: 20181026
  2. STERILE WATER [Concomitant]
     Active Substance: WATER
     Dosage: QUANTITY:2, DAY:1
     Dates: start: 20181031
  3. ADALAT [Concomitant]
     Active Substance: NIFEDIPINE
     Dosage: QUANTITY:1, DAY:1
     Dates: start: 20181027
  4. HUMULIN R [Concomitant]
     Active Substance: INSULIN HUMAN
     Dosage: QUANTITY:1,DAY:1
     Dates: start: 20181031
  5. VASELINE PURE [Concomitant]
     Active Substance: PETROLATUM
     Dosage: QUANTITY:1,DAY:1
     Dates: start: 20181028
  6. KALIMATE [Concomitant]
     Active Substance: CALCIUM POLYSTYRENE SULFONATE
     Dosage: QUANTITY:6,DAY:1
     Dates: start: 20181031
  7. DEXTROSE. [Concomitant]
     Active Substance: DEXTROSE
     Dosage: CHOONGWAE 50%,QUANTITY:1,DAY:1
     Dates: start: 20181031
  8. VASOPRESSIN. [Concomitant]
     Active Substance: VASOPRESSIN
     Dosage: QUANTITY:1,DAY:1
     Dates: start: 20181031
  9. SUSPEN ER [Concomitant]
     Dosage: QUANTITY:2, DAY:1
     Dates: start: 20181027
  10. FENTANYL CITRATE HANA [Concomitant]
     Dosage: QUANTITY:1,DAY:1
     Dates: start: 20181031
  11. CALCIUM GLUCONATE. [Concomitant]
     Active Substance: CALCIUM GLUCONATE
     Dosage: QUANTITY:1, DAY:1
     Dates: start: 20181031
  12. KEYTRUDA [Suspect]
     Active Substance: PEMBROLIZUMAB
     Dosage: QUANTITY:2, DAY:1
     Dates: start: 20181029
  13. NORVASC [Concomitant]
     Active Substance: AMLODIPINE BESYLATE
     Dosage: QUANTITY:1, DAY:1
     Dates: start: 20181026
  14. NORVASC [Concomitant]
     Active Substance: AMLODIPINE BESYLATE
     Dosage: QUANTITY:2, DAY:1
     Dates: start: 20181027
  15. HEXAMEDINE [Concomitant]
     Dosage: QUANTITY:1, DAY:1
     Dates: start: 20181028
  16. DEXTROSE. [Concomitant]
     Active Substance: DEXTROSE
     Dosage: QUANTITY:1, DAYS:2
     Dates: start: 20181029
  17. SODIUM CHLORIDE. [Concomitant]
     Active Substance: SODIUM CHLORIDE
     Dosage: QUANTITY:3, DAY:1
     Dates: start: 20181029
  18. LASIX [Concomitant]
     Active Substance: FUROSEMIDE
     Dosage: QUANTITY:2,DAY:1
     Dates: start: 20181030
  19. SODIUM BICARBONATE. [Concomitant]
     Active Substance: SODIUM BICARBONATE
     Dosage: 8.4%, QUANTITY:3,DAY:1
     Dates: start: 20181031
  20. TRANEXAMIC ACID. [Concomitant]
     Active Substance: TRANEXAMIC ACID
     Dosage: 5000MG/5ML,QUANTITY:2,DAY:1
     Dates: start: 20181031
  21. PERIDOL (CORN) [Concomitant]
     Dosage: 5MG/ML, QUANTITY:1,DAY:1
     Dates: start: 20181031
  22. STERILE WATER [Concomitant]
     Active Substance: WATER
     Dosage: QUANTITY:1, DAY:1
     Dates: start: 20181030
  23. DEXTROSE. [Concomitant]
     Active Substance: DEXTROSE
     Dosage: QUANTITY:4, DAYS:1
     Dates: start: 20181030
  24. DEXTROSE. [Concomitant]
     Active Substance: DEXTROSE
     Dosage: CHOONGWAE 5%, QUANTITY:3, DAY:1
     Dates: start: 20181030
  25. EPINEPHRINE DAIHAN [Concomitant]
     Dosage: QUANTITY:10,DAY:1
     Dates: start: 20181031

REACTIONS (1)
  - Acute respiratory failure [Fatal]

NARRATIVE: CASE EVENT DATE: 20181031
